FAERS Safety Report 7713021-8 (Version None)
Quarter: 2011Q3

REPORT INFORMATION
  Report Type: 
  Country: None (occurrence: None)
  Receive Date: 20110822
  Receipt Date: 20110804
  Transmission Date: 20111222
  Serious: Yes (Life-Threatening, Hospitalization, Other)
  Sender: FDA-Public Use
  Company Number: 2011MA008956

PATIENT
  Age: 80 Year
  Sex: Male

DRUGS (3)
  1. LOVASTATIN [Suspect]
     Indication: PRODUCT USED FOR UNKNOWN INDICATION
     Dosage: 40 MG;QD
  2. DILTIAZEM HCL [Suspect]
     Indication: PRODUCT USED FOR UNKNOWN INDICATION
  3. ATENOLOL [Suspect]
     Indication: PRODUCT USED FOR UNKNOWN INDICATION

REACTIONS (11)
  - ELECTROCARDIOGRAM T WAVE ABNORMAL [None]
  - CIRCULATORY COLLAPSE [None]
  - ALDOLASE INCREASED [None]
  - HYPERKALAEMIA [None]
  - URINARY INCONTINENCE [None]
  - BRADYARRHYTHMIA [None]
  - RENAL FAILURE ACUTE [None]
  - COMA [None]
  - RENAL FAILURE CHRONIC [None]
  - RHABDOMYOLYSIS [None]
  - NODAL RHYTHM [None]
